FAERS Safety Report 8411573 (Version 2)
Quarter: 2013Q1

REPORT INFORMATION
  Report Type: Report from Study
  Country: ES (occurrence: ES)
  Receive Date: 20120217
  Receipt Date: 20130125
  Transmission Date: 20140127
  Serious: Yes (Other)
  Sender: FDA-Public Use
  Company Number: ES-ROCHE-1033356

PATIENT
  Sex: 0

DRUGS (3)
  1. RITUXIMAB [Suspect]
     Indication: MANTLE CELL LYMPHOMA
     Dosage: UPTO 8 CYCLES
     Route: 065
  2. GEMCITABINE [Suspect]
     Indication: MANTLE CELL LYMPHOMA
     Dosage: UPTO 8 CYCLES
     Route: 065
  3. OXALIPLATIN [Suspect]
     Indication: MANTLE CELL LYMPHOMA
     Dosage: UPTO 8 CYCLES
     Route: 065

REACTIONS (3)
  - Neutropenia [Unknown]
  - Thrombocytopenia [Unknown]
  - Hepatotoxicity [Unknown]
